FAERS Safety Report 9058462 (Version 3)
Quarter: 2013Q2

REPORT INFORMATION
  Report Type: Report from Study
  Country: JP (occurrence: JP)
  Receive Date: 20130211
  Receipt Date: 20130524
  Transmission Date: 20140414
  Serious: Yes (Other)
  Sender: FDA-Public Use
  Company Number: JP-JNJFOC-20130202599

PATIENT
  Age: 65 Year
  Sex: Female
  Weight: 53 kg

DRUGS (8)
  1. GOLIMUMAB [Suspect]
     Indication: RHEUMATOID ARTHRITIS
     Route: 058
     Dates: start: 20120612, end: 20121106
  2. RHEUMATREX [Suspect]
     Indication: RHEUMATOID ARTHRITIS
     Route: 048
     Dates: start: 20120904, end: 20121204
  3. PREDNISOLONE [Concomitant]
     Indication: RHEUMATOID ARTHRITIS
     Route: 048
     Dates: start: 20120807, end: 20121203
  4. LOXONIN [Concomitant]
     Indication: RHEUMATOID ARTHRITIS
     Dates: start: 20120807, end: 20121203
  5. SELBEX [Concomitant]
     Indication: PROPHYLAXIS
     Route: 048
  6. FOLIC ACID [Concomitant]
     Indication: PROPHYLAXIS
     Dates: end: 20121203
  7. FOSAMAC [Concomitant]
     Indication: PROPHYLAXIS
     Route: 048
     Dates: start: 20121204
  8. SUVENYL [Concomitant]
     Indication: RHEUMATOID ARTHRITIS
     Route: 014

REACTIONS (4)
  - Lymphoma [Recovered/Resolved]
  - Chest X-ray abnormal [Recovering/Resolving]
  - Tonsillar hypertrophy [Recovered/Resolved]
  - Stomatitis [Recovered/Resolved]
